FAERS Safety Report 25687004 (Version 1)
Quarter: 2025Q3

REPORT INFORMATION
  Report Type: Spontaneous
  Country: EU (occurrence: EU)
  Receive Date: 20250816
  Receipt Date: 20250816
  Transmission Date: 20251021
  Serious: Yes (Other)
  Sender: AUROBINDO
  Company Number: EU-AUROBINDO-AUR-APL-2025-041249

PATIENT
  Age: 15 Year
  Sex: Male

DRUGS (2)
  1. BISOPROLOL [Suspect]
     Active Substance: BISOPROLOL
     Indication: Supraventricular tachycardia
     Route: 065
  2. FLECAINIDE [Suspect]
     Active Substance: FLECAINIDE
     Indication: Supraventricular tachycardia
     Route: 065

REACTIONS (1)
  - Drug ineffective [Unknown]
